FAERS Safety Report 8279809-2 (Version None)
Quarter: 2012Q2

REPORT INFORMATION
  Report Type: 
  Country: None (occurrence: None)
  Receive Date: 20120412
  Receipt Date: 20111118
  Transmission Date: 20120825
  Serious: No
  Sender: FDA-Public Use
  Company Number: US-ASTRAZENECA-2011SE63701

PATIENT
  Age: 62 Year
  Sex: Male

DRUGS (2)
  1. NYQUIL [Suspect]
     Route: 065
  2. NEXIUM [Suspect]
     Route: 048

REACTIONS (3)
  - MALAISE [None]
  - INFLUENZA [None]
  - SOMNOLENCE [None]
